FAERS Safety Report 12900639 (Version 6)
Quarter: 2023Q1

REPORT INFORMATION
  Report Type: Report from Study
  Country: US (occurrence: US)
  Receive Date: 20161101
  Receipt Date: 20230321
  Transmission Date: 20230418
  Serious: No
  Sender: FDA-Public Use
  Company Number: US-PFIZER INC-2016501857

PATIENT
  Sex: Male
  Weight: 107 kg

DRUGS (1)
  1. AMLODIPINE BESYLATE [Suspect]
     Active Substance: AMLODIPINE BESYLATE
     Indication: Hypertension
     Dosage: 5 MG, DAILY
     Route: 048
     Dates: start: 20150514

REACTIONS (3)
  - Drug hypersensitivity [Unknown]
  - Peripheral swelling [Unknown]
  - Joint swelling [Unknown]
